FAERS Safety Report 5011525-2 (Version None)
Quarter: 2006Q2

REPORT INFORMATION
  Report Type: 
  Country: None (occurrence: None)
  Receive Date: 20060404
  Receipt Date: 20060123
  Transmission Date: 20061013
  Serious: No
  Sender: FDA-Public Use
  Company Number: US200601003972

PATIENT
  Age: 58 Year
  Sex: Female

DRUGS (8)
  1. CYMBALTA [Suspect]
     Indication: DEPRESSION
     Dosage: 60 MG
     Dates: start: 20050801
  2. METHOTREXATE [Concomitant]
  3. FOSAMAX /ITA/ (ALENDRONATE SODIUM) [Concomitant]
  4. FOLIC ACID (FOLIC ACID UNKNOWN MANUFACTURER) [Concomitant]
  5. DICLOFENAC (DICLOFENAC) [Concomitant]
  6. ARAVA /UNK/ (LEFLUNOMIDE) [Concomitant]
  7. ESTRACE [Concomitant]
  8. TOPROL-XL [Concomitant]

REACTIONS (2)
  - ALOPECIA [None]
  - HAIR TEXTURE ABNORMAL [None]
